FAERS Safety Report 12953024 (Version 1)
Quarter: 2016Q4

REPORT INFORMATION
  Report Type: Report from Study
  Country: CA (occurrence: CA)
  Receive Date: 20161117
  Receipt Date: 20161117
  Transmission Date: 20170207
  Serious: Yes (Hospitalization)
  Sender: FDA-Public Use
  Company Number: CA-HLSUS-2016-CA-000372

PATIENT
  Age: 69 Year
  Sex: Male

DRUGS (8)
  1. CLOZARIL [Suspect]
     Active Substance: CLOZAPINE
     Indication: SCHIZOPHRENIA
     Route: 048
     Dates: start: 19970320
  2. BIO K [Concomitant]
  3. DOMPERIDONE [Concomitant]
     Active Substance: DOMPERIDONE
  4. EFFEXOR XR [Concomitant]
     Active Substance: VENLAFAXINE HYDROCHLORIDE
     Indication: SCHIZOPHRENIA
     Dosage: 37.5 MG ONCE DAILY
     Route: 048
  5. ATROPINE SULFATE. [Concomitant]
     Active Substance: ATROPINE SULFATE
     Dosage: 1-2 DROPS IN EACH EYE BED TIME
     Route: 047
  6. ABILIFY [Concomitant]
     Active Substance: ARIPIPRAZOLE
     Indication: SCHIZOPHRENIA
     Dosage: 15MG EVERY MORNING
     Route: 048
  7. COGENTIN [Concomitant]
     Active Substance: BENZTROPINE MESYLATE
     Dosage: 1 MG AT BED TIME
     Route: 048
  8. FLUANXOL DEPOT [Concomitant]
     Active Substance: FLUPENTIXOL DECANOATE
     Indication: SCHIZOPHRENIA
     Dosage: 0.3 MG EVERY 2 WEEKS
     Route: 030

REACTIONS (4)
  - Urine output increased [Recovered/Resolved]
  - Diarrhoea [Recovered/Resolved with Sequelae]
  - Faecaloma [Unknown]
  - Peau d^orange [Unknown]

NARRATIVE: CASE EVENT DATE: 201608
